FAERS Safety Report 20205655 (Version 2)
Quarter: 2021Q4

REPORT INFORMATION
  Report Type: Other
  Country: DE (occurrence: DE)
  Receive Date: 20211220
  Receipt Date: 20211222
  Transmission Date: 20220303
  Serious: Yes (Hospitalization, Other)
  Sender: FDA-Public Use
  Company Number: DE-ADRED-07634-01

PATIENT
  Age: 54 Year
  Sex: Female

DRUGS (7)
  1. TACROLIMUS [Suspect]
     Active Substance: TACROLIMUS
     Indication: Product used for unknown indication
     Dosage: 1.5 MG, TWICE DAILY (1-0-1-0)
     Route: 065
  2. MAGALDRATE [Concomitant]
     Active Substance: MAGALDRATE
     Indication: Product used for unknown indication
     Route: 065
  3. LEVOTHYROXINE [Concomitant]
     Active Substance: LEVOTHYROXINE
     Indication: Product used for unknown indication
     Dosage: 25 ?G, ONCE DAILY (1-0-0-0)
     Route: 065
  4. PANTOPRAZOLE SODIUM [Concomitant]
     Active Substance: PANTOPRAZOLE SODIUM
     Indication: Product used for unknown indication
     Dosage: 40 MG, TWICE DAILY (1-0-1-0)
     Route: 065
  5. SPIRONOLACTONE [Concomitant]
     Active Substance: SPIRONOLACTONE
     Indication: Product used for unknown indication
     Dosage: 50 MG, ONCE DAILY (1-0-0-0)
     Route: 065
  6. TORSEMIDE [Concomitant]
     Active Substance: TORSEMIDE
     Indication: Product used for unknown indication
     Dosage: 5 MG, ONCE DAILY (1-0-0-0)
     Route: 065
  7. APIXABAN [Concomitant]
     Active Substance: APIXABAN
     Indication: Product used for unknown indication
     Dosage: 5 MG, TWICE DAILY (1-0-1-0)
     Route: 065

REACTIONS (11)
  - Condition aggravated [Unknown]
  - Anaemia [Unknown]
  - Pyrexia [Unknown]
  - Renal impairment [Unknown]
  - Hyponatraemia [Unknown]
  - Wound complication [Unknown]
  - Urinary tract infection [Unknown]
  - Abdominal pain [Unknown]
  - Cough [Unknown]
  - Leukopenia [Unknown]
  - Vomiting [Unknown]
